FAERS Safety Report 5553628-X (Version None)
Quarter: 2007Q4

REPORT INFORMATION
  Report Type: 
  Country: None (occurrence: None)
  Receive Date: 20071213
  Receipt Date: 20071205
  Transmission Date: 20080405
  Serious: Yes (Other)
  Sender: FDA-Public Use
  Company Number: PHBS2007BR20480

PATIENT
  Sex: Female

DRUGS (1)
  1. NITRODERM [Suspect]
     Dosage: 5 MG, UNK
     Route: 062

REACTIONS (1)
  - INFARCTION [None]
